FAERS Safety Report 9049849 (Version 1)
Quarter: 2013Q1

REPORT INFORMATION
  Report Type: Spontaneous
  Country: US (occurrence: US)
  Receive Date: 20130205
  Receipt Date: 20130205
  Transmission Date: 20140127
  Serious: No
  Sender: FDA-Public Use
  Company Number: US-009507513-1301USA012599

PATIENT
  Sex: Male
  Weight: 77.98 kg

DRUGS (6)
  1. CLARITIN [Suspect]
     Indication: EYE PRURITUS
     Dosage: UNK
     Route: 048
  2. ATENOLOL [Suspect]
     Indication: HYPERTENSION
     Dosage: 25 MG, UNK
     Route: 048
     Dates: start: 1997
  3. POTASSIUM CHLORIDE [Suspect]
     Indication: ROUTINE HEALTH MAINTENANCE
  4. ADVIL [Suspect]
     Indication: PAIN IN EXTREMITY
  5. CYANOCOBALAMIN [Concomitant]
     Indication: ANAEMIA
  6. DYAZIDE [Concomitant]
     Indication: HYPERTENSION
     Dosage: 37.5 MG/25 MG, QD
     Route: 048
     Dates: start: 20121214

REACTIONS (2)
  - Rash pruritic [Recovered/Resolved]
  - Pain [Recovered/Resolved]
